FAERS Safety Report 17253430 (Version 4)
Quarter: 2020Q4

REPORT INFORMATION
  Report Type: Report from Study
  Country: CA (occurrence: CA)
  Receive Date: 20200109
  Receipt Date: 20201209
  Transmission Date: 20210113
  Serious: Yes (Other)
  Sender: FDA-Public Use
  Company Number: CA-APOPHARMA INC-2019AP026914

PATIENT
  Sex: Female
  Weight: 53 kg

DRUGS (2)
  1. DEFERIPRONE [Suspect]
     Active Substance: DEFERIPRONE
     Indication: THALASSAEMIA
     Dosage: 3000 MILLIGRAM, BID
     Route: 048
     Dates: start: 20171005, end: 2019
  2. DEFERIPRONE [Suspect]
     Active Substance: DEFERIPRONE
     Dosage: 104 MILLIGRAM/KILOGRAM, DAILY
     Route: 048
     Dates: start: 20100528, end: 20171004

REACTIONS (1)
  - Infection [Recovering/Resolving]

NARRATIVE: CASE EVENT DATE: 2019
